FAERS Safety Report 9155816 (Version 4)
Quarter: 2014Q1

REPORT INFORMATION
  Report Type: Report from Study
  Country: EG (occurrence: EG)
  Receive Date: 20130311
  Receipt Date: 20140115
  Transmission Date: 20141002
  Serious: Yes (Disabling)
  Sender: FDA-Public Use
  Company Number: EG-ROCHE-1200413

PATIENT
  Age: 50 Year
  Sex: Male
  Weight: 85 kg

DRUGS (3)
  1. PEGINTERFERON ALFA-2B [Suspect]
     Indication: CHRONIC HEPATITIS C
     Route: 058
     Dates: start: 20120405, end: 20120629
  2. VIRACURE [Suspect]
     Indication: CHRONIC HEPATITIS C
     Route: 048
     Dates: start: 20120405, end: 20120629
  3. RIBAVIRIN [Suspect]
     Indication: CHRONIC HEPATITIS C
     Route: 065
     Dates: end: 20120629

REACTIONS (1)
  - Visual acuity reduced [Recovered/Resolved with Sequelae]
